FAERS Safety Report 6408428-5 (Version None)
Quarter: 2009Q4

REPORT INFORMATION
  Report Type: 
  Country: None (occurrence: None)
  Receive Date: 20091016
  Receipt Date: 20091005
  Transmission Date: 20100525
  Serious: Yes (Life-Threatening)
  Sender: FDA-Public Use
  Company Number: GXKR2009GB10972

PATIENT
  Age: 35 Year
  Sex: Male
  Weight: 72 kg

DRUGS (4)
  1. VENLAFAXINE [Suspect]
     Indication: DEPRESSION
     Dosage: 75 MG, UNK, ORAL
     Route: 048
     Dates: start: 20080827
  2. ZOPICLONE (ZOPICLONE) [Suspect]
     Indication: INSOMNIA
     Dosage: 7.5 MG, UNK, ORAL
     Route: 048
     Dates: start: 20081007, end: 20090903
  3. SALMETEROL (SALMETEROL) [Concomitant]
  4. SERVENT (SALMETEROL XINAFOATE) [Concomitant]

REACTIONS (3)
  - ABNORMAL SLEEP-RELATED EVENT [None]
  - ROAD TRAFFIC ACCIDENT [None]
  - SOMNAMBULISM [None]
